FAERS Safety Report 14481944 (Version 2)
Quarter: 2018Q1

REPORT INFORMATION
  Report Type: Spontaneous
  Country: GB (occurrence: GB)
  Receive Date: 20180202
  Receipt Date: 20180309
  Transmission Date: 20180509
  Serious: Yes (Other)
  Sender: FDA-Public Use
  Company Number: GB-ELI_LILLY_AND_COMPANY-GB201711005544

PATIENT
  Age: 55 Year
  Sex: Female

DRUGS (1)
  1. FORSTEO [Suspect]
     Active Substance: TERIPARATIDE
     Indication: PRODUCT USED FOR UNKNOWN INDICATION
     Dosage: 20 U, UNKNOWN
     Route: 065
     Dates: start: 20111111

REACTIONS (6)
  - Tibia fracture [Not Recovered/Not Resolved]
  - Fracture nonunion [Not Recovered/Not Resolved]
  - Fibula fracture [Unknown]
  - Knee deformity [Unknown]
  - Incorrect drug administration duration [Unknown]
  - Fall [Unknown]

NARRATIVE: CASE EVENT DATE: 201402
